FAERS Safety Report 10128708 (Version 1)
Quarter: 2014Q2

REPORT INFORMATION
  Report Type: Spontaneous
  Country: GB (occurrence: GB)
  Receive Date: 20140428
  Receipt Date: 20140428
  Transmission Date: 20141212
  Serious: Yes (Life-Threatening)
  Sender: FDA-Public Use
  Company Number: GB-JNJFOC-20140416830

PATIENT
  Age: 85 Year
  Sex: Male
  Weight: 80.73 kg

DRUGS (4)
  1. XARELTO [Suspect]
     Indication: CEREBROVASCULAR ACCIDENT
     Route: 048
     Dates: start: 20140204
  2. ATORVASTATIN [Concomitant]
     Route: 065
     Dates: start: 20140205
  3. RAMIPRIL [Concomitant]
     Route: 065
     Dates: start: 20140111
  4. AMLODIPINE [Concomitant]
     Route: 065
     Dates: start: 20140111

REACTIONS (2)
  - Haemoptysis [Recovered/Resolved]
  - Cough [Recovered/Resolved]
